FAERS Safety Report 5698011-1 (Version None)
Quarter: 2008Q2

REPORT INFORMATION
  Report Type: 
  Country: None (occurrence: None)
  Receive Date: 20080408
  Receipt Date: 20080327
  Transmission Date: 20081010
  Serious: Yes (Hospitalization)
  Sender: FDA-Public Use
  Company Number: US-ELI_LILLY_AND_COMPANY-US200803006294

PATIENT
  Sex: Male

DRUGS (4)
  1. HUMALOG [Suspect]
  2. HUMULIN N [Suspect]
     Dosage: UNK, UNK
  3. NOVOLOG [Concomitant]
  4. LANTUS [Concomitant]

REACTIONS (3)
  - MYOCARDIAL INFARCTION [None]
  - NEPHROLITHIASIS [None]
  - PAIN [None]
